FAERS Safety Report 8566660-9 (Version None)
Quarter: 2012Q3

REPORT INFORMATION
  Report Type: 
  Country: None (occurrence: None)
  Receive Date: 20120803
  Receipt Date: 20110801
  Transmission Date: 20120928
  Serious: No
  Sender: FDA-Public Use
  Company Number: US-ABBOTT-11P-163-0843150-00

PATIENT
  Age: 47 Year
  Sex: Female
  Weight: 77.18 kg

DRUGS (16)
  1. NPH INSULIN [Concomitant]
     Indication: DIABETES MELLITUS
  2. ASPIRIN [Concomitant]
     Indication: PRODUCT USED FOR UNKNOWN INDICATION
  3. TOPROL-XL [Concomitant]
     Indication: HYPERTENSION
     Route: 048
  4. MAGNESIUM [Concomitant]
     Indication: BLOOD MAGNESIUM DECREASED
  5. REGULAR INSULIN [Concomitant]
     Indication: DIABETES MELLITUS
     Route: 050
  6. FISH OIL [Concomitant]
     Indication: BLOOD CHOLESTEROL ABNORMAL
  7. ALPHA LIPOIC ACID [Concomitant]
     Indication: DIABETES MELLITUS
  8. EFFEXOR XR [Suspect]
     Indication: DIABETIC NEUROPATHY
     Route: 048
  9. METFORMIN HYDROCHLORIDE [Concomitant]
     Indication: DIABETES MELLITUS
  10. COZAAR [Concomitant]
     Indication: HYPERTENSION
     Route: 048
  11. NIASPAN [Suspect]
     Indication: BLOOD CHOLESTEROL ABNORMAL
     Route: 048
  12. CINNAMON [Concomitant]
     Indication: DIABETES MELLITUS
  13. TRICOR [Concomitant]
     Indication: BLOOD TRIGLYCERIDES INCREASED
     Route: 048
  14. LIPITOR [Concomitant]
     Indication: BLOOD TRIGLYCERIDES INCREASED
     Route: 048
  15. ALPHA LIPOIC ACID [Concomitant]
     Indication: NERVE INJURY
  16. DOCUSATE [Concomitant]
     Indication: PRODUCT USED FOR UNKNOWN INDICATION

REACTIONS (5)
  - PRURITUS [None]
  - GLYCOSYLATED HAEMOGLOBIN INCREASED [None]
  - DIZZINESS [None]
  - BALANCE DISORDER [None]
  - FEELING ABNORMAL [None]
